FAERS Safety Report 11912798 (Version 1)
Quarter: 2016Q1

REPORT INFORMATION
  Report Type: Spontaneous
  Country: FR (occurrence: FR)
  Receive Date: 20160113
  Receipt Date: 20160113
  Transmission Date: 20160526
  Serious: Yes (Hospitalization, Congenital Anomaly)
  Sender: FDA-Public Use
  Company Number: FR-BRISTOL-MYERS SQUIBB COMPANY-10709541

PATIENT
  Age: 0 Day
  Sex: Male
  Weight: 2.83 kg

DRUGS (10)
  1. EPIVIR [Suspect]
     Active Substance: LAMIVUDINE
     Indication: PRODUCT USED FOR UNKNOWN INDICATION
     Dosage: UNK
     Route: 064
  2. ZERIT [Suspect]
     Active Substance: STAVUDINE
     Indication: PROPHYLAXIS AGAINST HIV INFECTION
     Route: 048
  3. RETROVIR [Suspect]
     Active Substance: ZIDOVUDINE
     Indication: PRODUCT USED FOR UNKNOWN INDICATION
     Dosage: UNK
     Route: 064
  4. EPIVIR [Suspect]
     Active Substance: LAMIVUDINE
     Indication: PROPHYLAXIS AGAINST HIV INFECTION
     Route: 065
  5. I RON [Concomitant]
     Active Substance: FERROUS FUMARATE
     Indication: PRODUCT USED FOR UNKNOWN INDICATION
     Dosage: UNK
     Route: 064
  6. VITAMINS [Concomitant]
     Active Substance: VITAMINS
     Indication: PRODUCT USED FOR UNKNOWN INDICATION
     Route: 065
  7. VIRACEPT [Suspect]
     Active Substance: NELFINAVIR MESYLATE
     Indication: PRODUCT USED FOR UNKNOWN INDICATION
     Dosage: UNK
     Route: 064
  8. FLUOR [Concomitant]
     Indication: PRODUCT USED FOR UNKNOWN INDICATION
     Route: 065
  9. ZERIT [Suspect]
     Active Substance: STAVUDINE
     Indication: PRODUCT USED FOR UNKNOWN INDICATION
     Dosage: UNK
     Route: 064
  10. EPIVIR [Suspect]
     Active Substance: LAMIVUDINE
     Dosage: UNK
     Route: 048

REACTIONS (6)
  - Anaemia macrocytic [Recovered/Resolved]
  - Abdominal pain [Recovered/Resolved]
  - Foetal exposure during pregnancy [Recovered/Resolved]
  - Hypertonia [Recovered/Resolved]
  - Blood lactic acid increased [Recovered/Resolved]
  - Nasal septum deviation [Recovered/Resolved]

NARRATIVE: CASE EVENT DATE: 19990702
